FAERS Safety Report 14535239 (Version 2)
Quarter: 2018Q1

REPORT INFORMATION
  Report Type: Report from Study
  Country: CA (occurrence: CA)
  Receive Date: 20180215
  Receipt Date: 20180220
  Transmission Date: 20180509
  Serious: Yes (Other)
  Sender: FDA-Public Use
  Company Number: CA-JNJFOC-20180217852

PATIENT
  Age: 31 Year
  Sex: Female
  Weight: 98 kg

DRUGS (1)
  1. STELARA [Suspect]
     Active Substance: USTEKINUMAB
     Indication: CROHN^S DISEASE
     Dosage: STRENGTH = 130 MG
     Route: 042
     Dates: start: 20171222

REACTIONS (7)
  - Upper respiratory tract infection [Not Recovered/Not Resolved]
  - Gastroenteritis viral [Recovered/Resolved]
  - Heart rate increased [Recovered/Resolved]
  - Tendon injury [Recovered/Resolved]
  - Infusion related reaction [Recovered/Resolved]
  - Tooth abscess [Recovered/Resolved]
  - Crohn^s disease [Recovered/Resolved]

NARRATIVE: CASE EVENT DATE: 20171222
